FAERS Safety Report 8479863-9 (Version None)
Quarter: 2012Q2

REPORT INFORMATION
  Report Type: 
  Country: None (occurrence: None)
  Receive Date: 20120629
  Receipt Date: 20120620
  Transmission Date: 20120825
  Serious: Yes (Hospitalization, Other)
  Sender: FDA-Public Use
  Company Number: BR-ASTRAZENECA-2012SE42085

PATIENT
  Age: 61 Year
  Sex: Female
  Weight: 50 kg

DRUGS (3)
  1. ALPRAZOLAM [Concomitant]
     Route: 048
  2. CRESTOR [Suspect]
     Indication: BLOOD CHOLESTEROL INCREASED
     Route: 048
     Dates: start: 20120101
  3. CALCIUM [Concomitant]
     Indication: OSTEOPOROSIS
     Route: 048

REACTIONS (2)
  - CONJUNCTIVITIS [None]
  - CATARACT [None]
